FAERS Safety Report 7930447-8 (Version None)
Quarter: 2011Q4

REPORT INFORMATION
  Report Type: 
  Country: None (occurrence: None)
  Receive Date: 20111121
  Receipt Date: 20110821
  Transmission Date: 20120403
  Serious: No
  Sender: FDA-Public Use
  Company Number: US-BAYER-2011-083363

PATIENT
  Sex: Female

DRUGS (3)
  1. CYMBALTA [Concomitant]
  2. ALEVE (CAPLET) [Suspect]
     Dosage: UNK
  3. LYRICA [Concomitant]

REACTIONS (1)
  - NO ADVERSE EVENT [None]
